FAERS Safety Report 7660245-4 (Version None)
Quarter: 2011Q3

REPORT INFORMATION
  Report Type: 
  Country: None (occurrence: None)
  Receive Date: 20110805
  Receipt Date: 20110728
  Transmission Date: 20111222
  Serious: Yes (Other)
  Sender: FDA-Public Use
  Company Number: PHHY2011CA67400

PATIENT
  Sex: Female

DRUGS (3)
  1. ZOLEDRONOC ACID [Suspect]
     Indication: OSTEOPOROSIS
     Dosage: 5 MG / 150 ML ANNUALLY
     Route: 042
     Dates: start: 20080910
  2. ZOLEDRONOC ACID [Suspect]
     Dosage: UNK UG/ML, UNK
     Route: 042
     Dates: start: 20090929
  3. ZOLEDRONOC ACID [Suspect]
     Dosage: UNK UKN, UNK
     Route: 042
     Dates: start: 20101013

REACTIONS (1)
  - TOOTH LOSS [None]
